FAERS Safety Report 8842168 (Version 1)
Quarter: 2012Q4

REPORT INFORMATION
  Report Type: 
  Country: US (occurrence: US)
  Receive Date: 20121016
  Receipt Date: 20121016
  Transmission Date: 20130627
  Serious: Yes (Other)
  Sender: FDA-Public Use
  Company Number: PHEH2012US019820

PATIENT
  Age: 17 Year
  Sex: Female

DRUGS (6)
  1. TRILEPTAL [Suspect]
     Indication: PARTIAL SEIZURES
     Dosage: 900 mg, UNK
     Route: 048
  2. TRILEPTAL [Suspect]
     Dosage: 600 mg, UNK
     Route: 048
  3. TRILEPTAL [Suspect]
     Dosage: 900 mg, UNK
     Route: 048
  4. SABRIL [Suspect]
     Indication: PARTIAL SEIZURES
     Dosage: 250 mg, twice daily
     Route: 048
     Dates: start: 20120816, end: 20120821
  5. SABRIL [Suspect]
     Dosage: 500 mg, twice daily
     Route: 048
     Dates: start: 20120821, end: 20120913
  6. TRETINOIN [Suspect]

REACTIONS (11)
  - Gastrointestinal viral infection [Unknown]
  - Chills [Recovered/Resolved]
  - Muscular weakness [Unknown]
  - Vomiting [Unknown]
  - Hypersensitivity [Recovered/Resolved]
  - Throat tightness [Recovered/Resolved]
  - Rash [Recovered/Resolved]
  - Seizure cluster [Recovered/Resolved]
  - Fall [Unknown]
  - Palpitations [Unknown]
  - Convulsion [Recovered/Resolved]
